FAERS Safety Report 6998537-4 (Version None)
Quarter: 2010Q3

REPORT INFORMATION
  Report Type: 
  Country: None (occurrence: None)
  Receive Date: 20100920
  Receipt Date: 20100330
  Transmission Date: 20110219
  Serious: Yes (Other)
  Sender: FDA-Public Use
  Company Number: US-ASTRAZENECA-2006UW09050

PATIENT
  Sex: Male

DRUGS (9)
  1. SEROQUEL [Suspect]
     Indication: BIPOLAR DISORDER
     Dosage: 100 MG TO 200 MG
     Route: 048
     Dates: start: 20010401, end: 20020801
  2. RISPERDAL [Suspect]
     Indication: BIPOLAR DISORDER
     Dosage: 1 MG TO 4 MG
     Dates: start: 19951201, end: 19970601
  3. ZYPREXA [Suspect]
     Indication: DEPRESSION
     Dosage: 5 MG TO 20 MG
     Dates: start: 19960101, end: 20010101
  4. ZYPREXA [Suspect]
     Indication: BIPOLAR DISORDER
     Dosage: 5 MG TO 20 MG
     Dates: start: 19960101, end: 20010101
  5. ZYPREXA [Suspect]
     Dosage: 5 MG TWO BID
     Dates: start: 20010329
  6. ZYPREXA [Suspect]
     Dosage: 5 MG TWO BID
     Dates: start: 20010329
  7. ZOLOFT [Concomitant]
     Dosage: 100 MG HALF OD
     Dates: start: 20010329
  8. GABAPENTIN [Concomitant]
     Dates: start: 20010329
  9. DEPAKOTE [Concomitant]
     Dosage: 250 MG 1 AM AND 2 HS
     Dates: start: 20010329

REACTIONS (2)
  - DIABETES MELLITUS [None]
  - PANCREATITIS [None]
